FAERS Safety Report 9160297 (Version 1)
Quarter: 2013Q1

REPORT INFORMATION
  Report Type: Spontaneous
  Country: FR (occurrence: FR)
  Receive Date: 20130313
  Receipt Date: 20130313
  Transmission Date: 20140127
  Serious: Yes (Other)
  Sender: FDA-Public Use
  Company Number: FR-JNJFOC-20130302081

PATIENT
  Age: 84 Year
  Sex: Male

DRUGS (11)
  1. DUROGESIC [Suspect]
     Indication: PRODUCT USED FOR UNKNOWN INDICATION
     Route: 062
     Dates: start: 20121122, end: 20121122
  2. THERALENE [Suspect]
     Indication: PRODUCT USED FOR UNKNOWN INDICATION
     Route: 048
     Dates: start: 20121122
  3. IMOVANE [Suspect]
     Indication: PRODUCT USED FOR UNKNOWN INDICATION
     Route: 048
  4. IMOVANE [Suspect]
     Indication: PRODUCT USED FOR UNKNOWN INDICATION
     Route: 048
     Dates: start: 20121120, end: 20121122
  5. LYRICA [Suspect]
     Indication: PRODUCT USED FOR UNKNOWN INDICATION
     Route: 048
     Dates: end: 20121121
  6. LYRICA [Suspect]
     Indication: PRODUCT USED FOR UNKNOWN INDICATION
     Route: 048
     Dates: start: 20121120, end: 20121122
  7. ACEBUTOLOL HYDROCHLORIDE [Concomitant]
     Route: 065
  8. TAREG [Concomitant]
     Route: 048
     Dates: end: 20121130
  9. TAHOR [Concomitant]
     Route: 065
     Dates: end: 20121130
  10. LASILIX [Concomitant]
     Route: 065
  11. PREVISCAN (FLUINDIONE) [Concomitant]
     Dosage: 20 MG; 0.75 DOSE EVERY DAY
     Route: 048

REACTIONS (5)
  - Depressed level of consciousness [Recovered/Resolved]
  - Respiratory depression [Recovered/Resolved]
  - Myoclonus [Recovered/Resolved]
  - Miosis [Recovered/Resolved]
  - Blood pressure decreased [Recovered/Resolved]
